FAERS Safety Report 5006905-5 (Version None)
Quarter: 2006Q2

REPORT INFORMATION
  Report Type: 
  Country: None (occurrence: None)
  Receive Date: 20060517
  Receipt Date: 20060508
  Transmission Date: 20061013
  Serious: Yes (Other)
  Sender: FDA-Public Use
  Company Number: 2006049206

PATIENT
  Age: 40 Year
  Sex: Female

DRUGS (3)
  1. PREGABALIN                          (PREGABALIN) [Suspect]
     Indication: PARTIAL SEIZURES
     Dosage: 200 MG (100 MG, 2 IN 1 D), ORAL
     Route: 048
     Dates: start: 20051201
  2. TEGRETOL [Concomitant]
  3. GABAPENTIN [Concomitant]

REACTIONS (2)
  - BREAST MASS [None]
  - BREAST SWELLING [None]
